FAERS Safety Report 9314852 (Version 1)
Quarter: 2013Q2

REPORT INFORMATION
  Report Type: Spontaneous
  Country: PL (occurrence: PL)
  Receive Date: 20130529
  Receipt Date: 20130529
  Transmission Date: 20140414
  Serious: Yes (Other)
  Sender: FDA-Public Use
  Company Number: PL-TEVA-407831ISR

PATIENT
  Age: 61 Year
  Sex: Male
  Weight: 94 kg

DRUGS (3)
  1. OXALIPLATIN TEVA [Suspect]
     Indication: COLON CANCER
     Dosage: 85 MG/M2 DAILY;
     Route: 042
     Dates: start: 20121011, end: 20121011
  2. 5 FLUOROURACYL [Concomitant]
  3. LEUCOVORINE [Concomitant]

REACTIONS (4)
  - Pyrexia [Unknown]
  - Chills [Unknown]
  - Flushing [Unknown]
  - Malaise [Unknown]
